FAERS Safety Report 6639439-2 (Version None)
Quarter: 2010Q1

REPORT INFORMATION
  Report Type: 
  Country: None (occurrence: None)
  Receive Date: 20100315
  Receipt Date: 20100301
  Transmission Date: 20100710
  Serious: Yes (Hospitalization)
  Sender: FDA-Public Use
  Company Number: 2010AP000347

PATIENT
  Age: 38 Year
  Sex: Male

DRUGS (4)
  1. LITHIUM CARBONATE CAP [Suspect]
     Indication: BIPOLAR DISORDER
     Dosage: 900 MG;QD;
  2. LAMOTRIGINE [Suspect]
     Indication: BIPOLAR DISORDER
  3. ZIPRASIDONE HCL [Suspect]
     Indication: BIPOLAR DISORDER
  4. AMISULPRIDE [Concomitant]

REACTIONS (9)
  - BRUGADA SYNDROME [None]
  - CARDIAC ARREST [None]
  - COLD SWEAT [None]
  - ELECTROCARDIOGRAM QT PROLONGED [None]
  - FALL [None]
  - LOSS OF CONSCIOUSNESS [None]
  - NO THERAPEUTIC RESPONSE [None]
  - PERIPHERAL COLDNESS [None]
  - SINUS TACHYCARDIA [None]
